FAERS Safety Report 24706570 (Version 2)
Quarter: 2024Q4

REPORT INFORMATION
  Report Type: Spontaneous
  Country: JP (occurrence: JP)
  Receive Date: 20241206
  Receipt Date: 20241219
  Transmission Date: 20250115
  Serious: Yes (Other)
  Sender: GILEAD
  Company Number: JP-GILEAD-2024-0695869

PATIENT
  Age: 76 Year
  Sex: Male

DRUGS (5)
  1. EMTRICITABINE\TENOFOVIR [Suspect]
     Active Substance: EMTRICITABINE\TENOFOVIR
     Indication: HIV infection
     Dosage: UNK
     Route: 045
  2. DOLUTEGRAVIR SODIUM [Concomitant]
     Active Substance: DOLUTEGRAVIR SODIUM
     Indication: HIV infection
     Dosage: UNK
  3. MARAVIROC [Concomitant]
     Active Substance: MARAVIROC
     Indication: HIV infection
     Dosage: UNK
  4. MARAVIROC [Concomitant]
     Active Substance: MARAVIROC
     Indication: Progressive multifocal leukoencephalopathy
  5. MAGNESIUM OXIDE [Concomitant]
     Active Substance: MAGNESIUM OXIDE

REACTIONS (3)
  - Immune reconstitution inflammatory syndrome [Recovering/Resolving]
  - Progressive multifocal leukoencephalopathy [Recovering/Resolving]
  - Intentional product use issue [Not Recovered/Not Resolved]
